FAERS Safety Report 24753637 (Version 1)
Quarter: 2024Q4

REPORT INFORMATION
  Report Type: Spontaneous
  Country: CN (occurrence: CN)
  Receive Date: 20241219
  Receipt Date: 20241219
  Transmission Date: 20250114
  Serious: Yes (Other)
  Sender: PFIZER
  Company Number: CN-PFIZER INC-PV202400163677

PATIENT
  Age: 3 Year
  Sex: Male
  Weight: 15.5 kg

DRUGS (2)
  1. CYTARABINE [Suspect]
     Active Substance: CYTARABINE
     Indication: Neoplasm malignant
     Dosage: 0.033 G, 2X/DAY
     Route: 041
     Dates: start: 20241201, end: 20241204
  2. CYTARABINE [Suspect]
     Active Substance: CYTARABINE
     Dosage: 7 MG, 2X/DAY
     Route: 058
     Dates: start: 20241205, end: 20241213

REACTIONS (7)
  - Pyrexia [Recovering/Resolving]
  - Rash erythematous [Recovering/Resolving]
  - Infection [Recovering/Resolving]
  - Body temperature fluctuation [Recovering/Resolving]
  - Cough [Recovering/Resolving]
  - Rhinorrhoea [Recovering/Resolving]
  - Rhinovirus infection [Recovering/Resolving]

NARRATIVE: CASE EVENT DATE: 20241201
